FAERS Safety Report 5329194-0 (Version None)
Quarter: 2007Q2

REPORT INFORMATION
  Report Type: 
  Country: None (occurrence: None)
  Receive Date: 20070518
  Receipt Date: 20070508
  Transmission Date: 20071010
  Serious: Yes (Hospitalization)
  Sender: FDA-Public Use
  Company Number: AU-ABBOTT-07P-008-0365793-00

PATIENT
  Sex: Male

DRUGS (10)
  1. RITONAVIR SOFT GELATIN CAPSULES [Suspect]
     Indication: HIV INFECTION
     Route: 048
     Dates: start: 20040930
  2. APTIVUS [Suspect]
     Indication: HIV INFECTION
     Route: 048
     Dates: start: 20040930
  3. SUSTANON [Suspect]
     Indication: BLOOD TESTOSTERONE DECREASED
     Route: 030
     Dates: start: 20060401
  4. VALACYCLOVIR HCL [Concomitant]
     Indication: HERPES SIMPLEX
     Route: 048
     Dates: start: 19890101
  5. SALBUTAMOL [Concomitant]
     Indication: DRUG USE FOR UNKNOWN INDICATION
     Route: 055
  6. MK0518 [Concomitant]
     Indication: DRUG USE FOR UNKNOWN INDICATION
     Route: 048
  7. OMEPRAZOLE [Concomitant]
     Indication: GASTROOESOPHAGEAL REFLUX PROPHYLAXIS
     Route: 048
     Dates: start: 19990101
  8. BACTRIM [Concomitant]
     Indication: ANTIFUNGAL PROPHYLAXIS
     Route: 048
     Dates: start: 20060101
  9. TRUVADA [Concomitant]
     Indication: DRUG USE FOR UNKNOWN INDICATION
     Route: 048
  10. OXAZEPAM [Concomitant]
     Indication: AGORAPHOBIA
     Route: 048
     Dates: start: 19640101

REACTIONS (1)
  - SUBCUTANEOUS ABSCESS [None]
